FAERS Safety Report 4841081-0 (Version None)
Quarter: 2005Q4

REPORT INFORMATION
  Report Type: 
  Country: None (occurrence: None)
  Receive Date: 20051130
  Receipt Date: 20050920
  Transmission Date: 20060501
  Serious: No
  Sender: FDA-Public Use
  Company Number: US-BRISTOL-MYERS SQUIBB COMPANY-13116645

PATIENT
  Age: 26 Year
  Sex: Female
  Weight: 113 kg

DRUGS (1)
  1. ABILIFY [Suspect]
     Indication: BIPOLAR DISORDER
     Dosage: FOR SEVERAL MONTHS

REACTIONS (2)
  - MENORRHAGIA [None]
  - WEIGHT INCREASED [None]
